FAERS Safety Report 5126021-1 (Version None)
Quarter: 2006Q4

REPORT INFORMATION
  Report Type: 
  Country: None (occurrence: None)
  Receive Date: 20061012
  Receipt Date: 20061004
  Transmission Date: 20070319
  Serious: Yes (Hospitalization)
  Sender: FDA-Public Use
  Company Number: FR-SANOFI-SYNTHELABO-A02200602533

PATIENT
  Age: 69 Year
  Sex: Male

DRUGS (5)
  1. STATIN NOS [Concomitant]
     Indication: DRUG USE FOR UNKNOWN INDICATION
     Dosage: UNK
     Route: 048
  2. SOPROL [Concomitant]
     Indication: CORONARY ARTERY INSUFFICIENCY
     Dosage: UNK
     Route: 048
  3. TRIATEC [Concomitant]
     Indication: CORONARY ARTERY INSUFFICIENCY
     Dosage: UNK
     Route: 048
  4. ASPIRIN [Concomitant]
     Indication: CORONARY ARTERIAL STENT INSERTION
     Route: 048
     Dates: start: 20050901
  5. PLAVIX [Suspect]
     Indication: CORONARY ARTERIAL STENT INSERTION
     Route: 048
     Dates: start: 20050901, end: 20061003

REACTIONS (3)
  - HAEMOLYTIC ANAEMIA [None]
  - PYREXIA [None]
  - THROMBOCYTOPENIA [None]
